FAERS Safety Report 12615092 (Version 1)
Quarter: 2016Q3

REPORT INFORMATION
  Report Type: Spontaneous
  Country: US (occurrence: US)
  Receive Date: 20160802
  Receipt Date: 20160802
  Transmission Date: 20161109
  Serious: No
  Sender: FDA-Public Use
  Company Number: US-PERRIGO-16US014550

PATIENT
  Age: 53 Year
  Sex: Female
  Weight: 117.91 kg

DRUGS (1)
  1. MINOXIDIL. [Suspect]
     Active Substance: MINOXIDIL
     Indication: ALOPECIA
     Dosage: 2 ML, BID
     Route: 061
     Dates: start: 20160301, end: 20160316

REACTIONS (3)
  - Off label use [Unknown]
  - Oropharyngeal pain [Not Recovered/Not Resolved]
  - Application site ulcer [Not Recovered/Not Resolved]

NARRATIVE: CASE EVENT DATE: 20160301
